FAERS Safety Report 7686133-5 (Version None)
Quarter: 2011Q3

REPORT INFORMATION
  Report Type: 
  Country: None (occurrence: None)
  Receive Date: 20110816
  Receipt Date: 20110809
  Transmission Date: 20111222
  Serious: Yes (Other)
  Sender: FDA-Public Use
  Company Number: PHHY2011CA66667

PATIENT
  Sex: Female

DRUGS (1)
  1. RIVASTIGMINE [Suspect]
     Dosage: UNK UKN, UNK
     Route: 062

REACTIONS (2)
  - AORTIC DISSECTION [None]
  - GENERAL PHYSICAL HEALTH DETERIORATION [None]
